FAERS Safety Report 4962963-5 (Version None)
Quarter: 2006Q2

REPORT INFORMATION
  Report Type: 
  Country: None (occurrence: None)
  Receive Date: 20060405
  Receipt Date: 20060324
  Transmission Date: 20061013
  Serious: Yes (Hospitalization, Other)
  Sender: FDA-Public Use
  Company Number: KR-JNJFOC-20060306183

PATIENT
  Sex: Female
  Weight: 41.5 kg

DRUGS (4)
  1. REMINYL [Suspect]
     Route: 048
  2. REMINYL [Suspect]
     Indication: DEMENTIA ALZHEIMER'S TYPE
     Route: 048
  3. SEROQUEL [Concomitant]
     Indication: DEMENTIA
     Route: 048
  4. XANAX [Concomitant]
     Indication: DEMENTIA
     Route: 048

REACTIONS (5)
  - BLOOD ALBUMIN DECREASED [None]
  - GLOMERULONEPHRITIS [None]
  - HAEMATURIA [None]
  - OEDEMA [None]
  - PROTEINURIA [None]
